FAERS Safety Report 7299504-6 (Version None)
Quarter: 2011Q1

REPORT INFORMATION
  Report Type: 
  Country: None (occurrence: None)
  Receive Date: 20110217
  Receipt Date: 20110207
  Transmission Date: 20110831
  Serious: Yes (Other)
  Sender: FDA-Public Use
  Company Number: FR-ELI_LILLY_AND_COMPANY-FR201102001798

PATIENT
  Age: 58 Year
  Sex: Female

DRUGS (4)
  1. PRAVASTATIN [Concomitant]
  2. CYMBALTA [Suspect]
     Dosage: 60 MG, UNKNOWN
  3. CYMBALTA [Suspect]
     Dosage: 30 MG, DAILY (1/D)
     Route: 048
     Dates: start: 20090601
  4. ASPIRIN [Concomitant]

REACTIONS (4)
  - HEPATIC CIRRHOSIS [None]
  - BLOOD CHOLESTEROL INCREASED [None]
  - CEREBROVASCULAR ACCIDENT [None]
  - GLAUCOMA [None]
